FAERS Safety Report 9400084 (Version 1)
Quarter: 2013Q3

REPORT INFORMATION
  Report Type: Spontaneous
  Country: US (occurrence: US)
  Receive Date: 20130715
  Receipt Date: 20130715
  Transmission Date: 20140515
  Serious: Yes (Death)
  Sender: FDA-Public Use
  Company Number: US-ASTELLAS-2013US007441

PATIENT
  Age: 87 Year
  Sex: Male

DRUGS (1)
  1. XTANDI [Suspect]
     Indication: METASTATIC NEOPLASM
     Dosage: 160 MG, UID/QD
     Route: 048
     Dates: start: 20130419, end: 20130623

REACTIONS (1)
  - Death [Fatal]
